FAERS Safety Report 13040937 (Version 1)
Quarter: 2016Q4

REPORT INFORMATION
  Report Type: Other
  Country: GB (occurrence: GB)
  Receive Date: 20161219
  Receipt Date: 20161219
  Transmission Date: 20170207
  Serious: Yes (Other)
  Sender: FDA-Public Use
  Company Number: GB-CELLTRION HEALTHCARE HUNGARY KFT-2016GB013165

PATIENT

DRUGS (3)
  1. INFLIXIMAB HOSPIRA [Suspect]
     Active Substance: INFLIXIMAB
     Dosage: UNK
     Dates: start: 20160125, end: 20160125
  2. METHOTREXATE. [Concomitant]
     Active Substance: METHOTREXATE
  3. INFLIXIMAB HOSPIRA [Suspect]
     Active Substance: INFLIXIMAB
     Indication: RHEUMATOID ARTHRITIS
     Dosage: UNK
     Route: 042
     Dates: start: 20151013, end: 20151013

REACTIONS (1)
  - Prostate cancer metastatic [Not Recovered/Not Resolved]
